FAERS Safety Report 9311859 (Version 1)
Quarter: 2013Q2

REPORT INFORMATION
  Report Type: Spontaneous
  Country: GB (occurrence: GB)
  Receive Date: 20130528
  Receipt Date: 20130528
  Transmission Date: 20140414
  Serious: Yes (Life-Threatening, Hospitalization)
  Sender: FDA-Public Use
  Company Number: PHHY2013GB051851

PATIENT
  Age: 70 Year
  Sex: Male
  Weight: 93 kg

DRUGS (8)
  1. PIOGLITAZONE [Suspect]
     Dosage: 15 MG, QD (PIOGLITAZONE TAKEN FOR 2.5 YEARS)
     Route: 048
     Dates: start: 201009
  2. PIOGLITAZONE [Suspect]
     Dosage: 15 MG, BID
     Route: 048
     Dates: start: 201101, end: 20130415
  3. METFORMIN [Concomitant]
     Dosage: 1 G, BID
     Route: 048
     Dates: start: 201009
  4. EZETIMIBE [Concomitant]
     Dosage: 10 MG, UNK
     Route: 048
     Dates: start: 200910
  5. MIZOLASTINE [Concomitant]
  6. QUININE SULPHATE [Concomitant]
  7. NAPROXEN [Concomitant]
  8. OMEPRAZOLE [Concomitant]

REACTIONS (1)
  - Pericardial effusion [Recovered/Resolved]
